FAERS Safety Report 24156054 (Version 1)
Quarter: 2024Q3

REPORT INFORMATION
  Report Type: Spontaneous
  Country: AU (occurrence: AU)
  Receive Date: 20240731
  Receipt Date: 20240731
  Transmission Date: 20241017
  Serious: Yes (Death)
  Sender: ITALFARMACO
  Company Number: AU-ITALFARMACO SPA-2159767

PATIENT
  Age: 79 Year
  Sex: Female

DRUGS (1)
  1. RILUZOLE [Suspect]
     Active Substance: RILUZOLE
     Route: 048
     Dates: end: 20240128

REACTIONS (4)
  - Dysphagia [Unknown]
  - Pancreatitis [Fatal]
  - Concomitant disease aggravated [Fatal]
  - Motor neurone disease [Fatal]

NARRATIVE: CASE EVENT DATE: 20240202
